FAERS Safety Report 12485644 (Version 2)
Quarter: 2017Q4

REPORT INFORMATION
  Report Type: Spontaneous
  Country: PL (occurrence: PL)
  Receive Date: 20160621
  Receipt Date: 20171106
  Transmission Date: 20180320
  Serious: Yes (Other)
  Sender: FDA-Public Use
  Company Number: PL-JNJFOC-20160613373

PATIENT

DRUGS (1)
  1. INFLIXIMAB, RECOMBINANT [Suspect]
     Active Substance: INFLIXIMAB
     Indication: COLITIS ULCERATIVE
     Route: 042

REACTIONS (4)
  - Psoriasis [Unknown]
  - Hypersensitivity [Unknown]
  - Colitis ulcerative [Unknown]
  - Surgery [Unknown]
